FAERS Safety Report 8352870-2 (Version None)
Quarter: 2012Q2

REPORT INFORMATION
  Report Type: 
  Country: None (occurrence: None)
  Receive Date: 20120511
  Receipt Date: 20120430
  Transmission Date: 20120825
  Serious: Yes (Other)
  Sender: FDA-Public Use
  Company Number: US-ELI_LILLY_AND_COMPANY-US201205000320

PATIENT
  Age: 37 Year
  Sex: Male

DRUGS (7)
  1. ZYPREXA [Suspect]
     Dosage: 2.5 MG, UNK
  2. METAMUCIL-2 [Concomitant]
  3. ZYPREXA [Suspect]
     Dosage: 7.5 MG, UNK
  4. ZYPREXA [Suspect]
     Dosage: 2.5 MG, UNK
  5. ZYPREXA [Suspect]
     Indication: BIPOLAR I DISORDER
     Dosage: 7.5 MG, UNK
  6. DEPAKOTE [Concomitant]
  7. ANTIPSYCHOTICS [Concomitant]

REACTIONS (3)
  - WEIGHT INCREASED [None]
  - HUNGER [None]
  - FEELING ABNORMAL [None]
